FAERS Safety Report 5008495-X (Version None)
Quarter: 2006Q2

REPORT INFORMATION
  Report Type: 
  Country: None (occurrence: None)
  Receive Date: 20060518
  Receipt Date: 20060501
  Transmission Date: 20061013
  Serious: Yes (Hospitalization)
  Sender: FDA-Public Use
  Company Number: 224983

PATIENT
  Age: 38 Year
  Sex: Female
  Weight: 47 kg

DRUGS (3)
  1. AVASTIN [Suspect]
     Indication: COLORECTAL CANCER
     Dosage: 345 MG, Q3W, INTRAVENOUS
     Route: 042
     Dates: start: 20060411, end: 20060501
  2. CAPECITABINE (CAPECITABINE) [Suspect]
     Indication: COLORECTAL CANCER
     Dosage: 1300 MG, BID, ORAL
     Route: 048
     Dates: start: 20060228, end: 20060501
  3. OXALIPLATIN (OXALIPLATIN) [Suspect]
     Indication: COLORECTAL CANCER
     Dosage: 182 MG, Q3W, INTRAVENOUS
     Route: 042
     Dates: start: 20060401, end: 20060501

REACTIONS (5)
  - BUTTOCK PAIN [None]
  - DISEASE RECURRENCE [None]
  - FEBRILE INFECTION [None]
  - NAIL INFECTION [None]
  - PELVIC ABSCESS [None]
